FAERS Safety Report 14935720 (Version 1)
Quarter: 2018Q2

REPORT INFORMATION
  Report Type: Report from Study
  Country: US (occurrence: US)
  Receive Date: 20180524
  Receipt Date: 20180524
  Transmission Date: 20180711
  Serious: Yes (Death)
  Sender: FDA-Public Use
  Company Number: US-ACTELION-A-NJ2018-171354

PATIENT
  Age: 5 Month
  Sex: Male

DRUGS (2)
  1. TRACLEER [Suspect]
     Active Substance: BOSENTAN
     Indication: PULMONARY ARTERIAL HYPERTENSION
     Dosage: 5 MG, BID FOR 1 WEEK
     Route: 048
     Dates: start: 20180419
  2. TRACLEER [Suspect]
     Active Substance: BOSENTAN
     Dosage: 10 MG, BID
     Route: 048
     Dates: start: 201804, end: 20180502

REACTIONS (6)
  - Bronchopulmonary dysplasia [Unknown]
  - Pulmonary arterial hypertension [Unknown]
  - Premature baby [Fatal]
  - No adverse event [Unknown]
  - Drug administered to patient of inappropriate age [Unknown]
  - Respiratory failure [Fatal]

NARRATIVE: CASE EVENT DATE: 20180419
